FAERS Safety Report 6321701-4 (Version None)
Quarter: 2009Q3

REPORT INFORMATION
  Report Type: 
  Country: None (occurrence: None)
  Receive Date: 20090819
  Receipt Date: 20090804
  Transmission Date: 20100115
  Serious: Yes (Death, Other)
  Sender: FDA-Public Use
  Company Number: 2009BI020467

PATIENT

DRUGS (5)
  1. ZEVALIN [Suspect]
     Indication: NON-HODGKIN'S LYMPHOMA
  2. ZEVALIN [Suspect]
     Indication: STEM CELL TRANSPLANT
  3. CYCLOSPORINE [Concomitant]
  4. FLUDARABINE PHOSPHATE [Concomitant]
  5. PREV MEDS [Concomitant]

REACTIONS (6)
  - ACUTE GRAFT VERSUS HOST DISEASE IN INTESTINE [None]
  - ACUTE GRAFT VERSUS HOST DISEASE IN LIVER [None]
  - DIARRHOEA [None]
  - HEPATORENAL SYNDROME [None]
  - SEPSIS [None]
  - VENOOCCLUSIVE LIVER DISEASE [None]
